FAERS Safety Report 6241636-5 (Version None)
Quarter: 2009Q2

REPORT INFORMATION
  Report Type: 
  Country: None (occurrence: None)
  Receive Date: 20090623
  Receipt Date: 20060622
  Transmission Date: 20091009
  Serious: Yes (Hospitalization)
  Sender: FDA-Public Use
  Company Number: AT-ROCHE-603292

PATIENT
  Sex: Male

DRUGS (22)
  1. DACLIZUMAB [Suspect]
     Route: 042
  2. MYCOPHENOLATE MOFETIL [Suspect]
     Dosage: DRUG REPORTED: MYCOPHENOLATMOFETIL
     Route: 048
     Dates: start: 20040609
  3. MYCOPHENOLATE MOFETIL [Suspect]
     Route: 048
     Dates: start: 20040726
  4. CYCLOSPORINE [Suspect]
     Dosage: DRUG REPORTED: CYCLOSPORINE
     Route: 048
     Dates: start: 20040609
  5. METHYLPREDNISOLONE [Suspect]
     Route: 042
     Dates: start: 20040609
  6. METHYLPREDNISOLONE [Suspect]
     Route: 042
     Dates: start: 20040610
  7. PREDNISOLONE [Suspect]
     Route: 048
     Dates: start: 20040611
  8. PREDNISOLONE [Suspect]
     Route: 048
     Dates: start: 20040618
  9. PREDNISOLONE [Suspect]
     Route: 048
     Dates: start: 20040914
  10. PREDNISOLONE [Suspect]
     Route: 048
     Dates: start: 20050420, end: 20050713
  11. AMLODIPINE [Concomitant]
     Route: 048
     Dates: start: 20040623
  12. AMLODIPINE [Concomitant]
     Route: 048
     Dates: start: 20041001, end: 20041210
  13. AMLODIPINE [Concomitant]
     Route: 048
     Dates: start: 20060621
  14. CLINDAMYCIN [Concomitant]
     Route: 048
     Dates: start: 20040610
  15. CLINDAMYCIN [Concomitant]
     Route: 048
     Dates: start: 20040611, end: 20040613
  16. METOPROLOL SUCCINATE [Concomitant]
     Route: 048
     Dates: start: 20040615
  17. MOXONIDINE [Concomitant]
     Dosage: DRUG REPORTED: MOXONIDIN
     Route: 048
     Dates: start: 20040611
  18. MOXONIDINE [Concomitant]
     Route: 048
     Dates: start: 20040613
  19. MOXONIDINE [Concomitant]
     Route: 048
     Dates: start: 20040618
  20. MOXONIDINE [Concomitant]
     Route: 048
     Dates: start: 20050621
  21. SULFAMETHOXAZOLE AND TRIMETHOPRIM [Concomitant]
     Dosage: DRUG REPORTED: TRIMETHOPRIM 160, SULFAMETHOXAZOL
     Route: 048
     Dates: start: 20040616, end: 20041210
  22. VALGANCICLOVIR HCL [Concomitant]
     Dosage: DRUG REPORTED: VALGANCYCLOVIR
     Route: 048
     Dates: start: 20040803, end: 20041023

REACTIONS (1)
  - SINUSITIS [None]
